FAERS Safety Report 5606825-9 (Version None)
Quarter: 2008Q1

REPORT INFORMATION
  Report Type: 
  Country: None (occurrence: None)
  Receive Date: 20080129
  Receipt Date: 20080121
  Transmission Date: 20080703
  Serious: Yes (Death, Other)
  Sender: FDA-Public Use
  Company Number: GB-RANBAXY-2005RR-01131

PATIENT

DRUGS (4)
  1. CODEINE SUL TAB [Suspect]
     Route: 065
  2. AMITRIPTYLINE HCL [Suspect]
     Indication: DEPRESSION
     Route: 048
  3. MORPHINE [Suspect]
     Route: 065
  4. NORTRIPTYLINE HCL [Suspect]
     Route: 065

REACTIONS (4)
  - DEATH [None]
  - DRUG INTERACTION [None]
  - INTENTIONAL DRUG MISUSE [None]
  - SUDDEN DEATH [None]
